FAERS Safety Report 13228449 (Version 1)
Quarter: 2017Q1

REPORT INFORMATION
  Report Type: Spontaneous
  Country: US (occurrence: US)
  Receive Date: 20170213
  Receipt Date: 20170213
  Transmission Date: 20170428
  Serious: No
  Sender: FDA-Public Use
  Company Number: US-ROCHE-1850436

PATIENT
  Age: 63 Year
  Sex: Female
  Weight: 55.39 kg

DRUGS (4)
  1. LASIX [Suspect]
     Active Substance: FUROSEMIDE
     Indication: OEDEMA
     Route: 048
  2. TYLENOL #1 (UNITED STATES) [Concomitant]
  3. ALECENSA [Suspect]
     Active Substance: ALECTINIB HYDROCHLORIDE
     Indication: LUNG CANCER METASTATIC
     Dosage: YES
     Route: 065
     Dates: start: 20160825
  4. B-12 SHOT (UNK INGREDIENTS) [Concomitant]
     Dosage: GETS 1ML SHOT ONCE A WEEK
     Route: 058

REACTIONS (10)
  - Heart rate decreased [Recovered/Resolved]
  - Joint swelling [Not Recovered/Not Resolved]
  - Diarrhoea [Recovered/Resolved]
  - Oedema [Not Recovered/Not Resolved]
  - Dyspepsia [Recovered/Resolved]
  - Peripheral swelling [Not Recovered/Not Resolved]
  - Dizziness [Recovered/Resolved]
  - Vitreous floaters [Not Recovered/Not Resolved]
  - Drug intolerance [Not Recovered/Not Resolved]
  - Blood pressure decreased [Not Recovered/Not Resolved]

NARRATIVE: CASE EVENT DATE: 201609
